FAERS Safety Report 20001772 (Version 1)
Quarter: 2021Q4

REPORT INFORMATION
  Report Type: Spontaneous
  Country: CN (occurrence: CN)
  Receive Date: 20211027
  Receipt Date: 20211027
  Transmission Date: 20220303
  Serious: Yes (Other)
  Sender: FDA-Public Use
  Company Number: 2021A783240

PATIENT
  Age: 57 Year
  Sex: Male
  Weight: 65 kg

DRUGS (1)
  1. IMFINZI [Suspect]
     Active Substance: DURVALUMAB
     Indication: Non-small cell lung cancer stage III
     Dosage: THE LAST DOSE OF MEDICATION WAS 620MG / CYCLE.620.0MG UNKNOWN
     Route: 042
     Dates: start: 20201113, end: 20201201

REACTIONS (1)
  - Immune-mediated lung disease [Recovering/Resolving]
